FAERS Safety Report 4296511-2 (Version None)
Quarter: 2004Q1

REPORT INFORMATION
  Report Type: 
  Country: None (occurrence: None)
  Receive Date: 20040126
  Receipt Date: 20030825
  Transmission Date: 20041129
  Serious: No
  Sender: FDA-Public Use
  Company Number: USA030845272

PATIENT
  Age: 29 Year
  Sex: Male
  Weight: 82 kg

DRUGS (6)
  1. STRATTERA [Suspect]
     Indication: ATTENTION DEFICIT/HYPERACTIVITY DISORDER
     Dosage: 40 MG/3 DAY
     Dates: start: 20030821
  2. STRATTERA [Suspect]
     Indication: NARCOLEPSY
     Dosage: 40 MG/3 DAY
     Dates: start: 20030821
  3. KLONOPIN [Concomitant]
  4. REMERON [Concomitant]
  5. DEXTRO AMPHETAMINE SULFATE TAB [Concomitant]
  6. ZYPREXA [Concomitant]

REACTIONS (3)
  - EYE IRRITATION [None]
  - PRESCRIBED OVERDOSE [None]
  - VISUAL ACUITY REDUCED [None]
